FAERS Safety Report 13372940 (Version 1)
Quarter: 2017Q1

REPORT INFORMATION
  Report Type: Spontaneous
  Country: US (occurrence: US)
  Receive Date: 20170327
  Receipt Date: 20170327
  Transmission Date: 20170429
  Serious: Yes (Other)
  Sender: FDA-Public Use
  Company Number: US-009507513-1703USA009455

PATIENT
  Age: 61 Year
  Sex: Female

DRUGS (5)
  1. DURAGESIC [Concomitant]
     Active Substance: FENTANYL
  2. LAMICTAL [Concomitant]
     Active Substance: LAMOTRIGINE
  3. HYDROCODONE [Concomitant]
     Active Substance: HYDROCODONE
  4. BELSOMRA [Suspect]
     Active Substance: SUVOREXANT
     Indication: INSOMNIA
     Dosage: UNK
     Route: 048
     Dates: start: 20170130, end: 2017
  5. GABAPENTIN. [Concomitant]
     Active Substance: GABAPENTIN

REACTIONS (3)
  - Limb discomfort [Unknown]
  - Loss of consciousness [Unknown]
  - Drug dose omission [Unknown]

NARRATIVE: CASE EVENT DATE: 2017
